FAERS Safety Report 7904130-9 (Version None)
Quarter: 2011Q4

REPORT INFORMATION
  Report Type: 
  Country: None (occurrence: None)
  Receive Date: 20111109
  Receipt Date: 20111107
  Transmission Date: 20120403
  Serious: Yes (Death)
  Sender: FDA-Public Use
  Company Number: JP-EISAI INC-E2020-09958-SPO-JP

PATIENT
  Age: 69 Year
  Sex: Female

DRUGS (5)
  1. AMOXAPINE [Concomitant]
     Indication: DEPRESSION
     Route: 048
     Dates: start: 20101001
  2. ARICEPT [Suspect]
     Indication: DEMENTIA ALZHEIMER'S TYPE
     Route: 048
     Dates: start: 20110127
  3. TOLEDOMIN [Concomitant]
     Indication: DEPRESSION
     Route: 048
     Dates: start: 20101001
  4. PURSENNID [Concomitant]
     Indication: CONSTIPATION
     Route: 048
     Dates: start: 20101001
  5. LEXOTAN [Concomitant]
     Indication: DEPRESSION
     Route: 048
     Dates: start: 20101001

REACTIONS (1)
  - DROWNING [None]
